FAERS Safety Report 25650189 (Version 1)
Quarter: 2025Q3

REPORT INFORMATION
  Report Type: Spontaneous
  Country: ID (occurrence: ID)
  Receive Date: 20250806
  Receipt Date: 20250806
  Transmission Date: 20251021
  Serious: Yes (Other)
  Sender: OTSUKA
  Company Number: ID-MMM-Otsuka-TSQBJ36E

PATIENT
  Age: 40 Year
  Sex: Female

DRUGS (3)
  1. ABILIFY [Suspect]
     Active Substance: ARIPIPRAZOLE
     Indication: Schizophrenia
     Dosage: 5 MG, QD
     Route: 048
     Dates: start: 2018
  2. REXULTI [Suspect]
     Active Substance: BREXPIPRAZOLE
     Indication: Schizophrenia
     Dosage: 2 MG, QD
     Route: 048
     Dates: start: 2022
  3. CIPRALEX [Concomitant]
     Active Substance: ESCITALOPRAM OXALATE
     Indication: Schizophrenia
     Dosage: UNK, QD
     Route: 048

REACTIONS (1)
  - Oculogyric crisis [Recovered/Resolved]
